FAERS Safety Report 7200596-0 (Version None)
Quarter: 2010Q4

REPORT INFORMATION
  Report Type: 
  Country: None (occurrence: None)
  Receive Date: 20101206
  Receipt Date: 20101129
  Transmission Date: 20110411
  Serious: Yes (Other)
  Sender: FDA-Public Use
  Company Number: JHP201000359

PATIENT
  Sex: Female

DRUGS (1)
  1. APLISOL [Suspect]
     Indication: WRONG DRUG ADMINISTERED
     Dosage: 0.5 ML, SINGLE INTRAMUSCULAR
     Route: 030
     Dates: start: 20091201, end: 20091201

REACTIONS (4)
  - DERMATOMYOSITIS [None]
  - INCORRECT DOSE ADMINISTERED [None]
  - INCORRECT ROUTE OF DRUG ADMINISTRATION [None]
  - WRONG DRUG ADMINISTERED [None]
